FAERS Safety Report 20854220 (Version 1)
Quarter: 2022Q2

REPORT INFORMATION
  Report Type: Spontaneous
  Country: US (occurrence: None)
  Receive Date: 20220519
  Receipt Date: 20220519
  Transmission Date: 20220721
  Serious: Yes (Hospitalization, Disabling)
  Sender: FDA-Public Use
  Company Number: None

PATIENT
  Age: 33 Year
  Sex: Female

DRUGS (5)
  1. CIMZIA [Suspect]
     Active Substance: CERTOLIZUMAB PEGOL
     Indication: Ankylosing spondylitis
     Dosage: OTHER FREQUENCY : EVRY 28 DAYS;?
     Route: 058
     Dates: start: 20210913
  2. VITAMIN D2 [Concomitant]
     Active Substance: ERGOCALCIFEROL
  3. ABILIFY 400MG INJECTION [Concomitant]
  4. AMLODIPINE [Concomitant]
     Active Substance: AMLODIPINE BESYLATE
  5. NICOTINE [Concomitant]
     Active Substance: NICOTINE

REACTIONS (2)
  - Injury [None]
  - Abnormal behaviour [None]

NARRATIVE: CASE EVENT DATE: 20220426
